FAERS Safety Report 5084958-6 (Version None)
Quarter: 2006Q3

REPORT INFORMATION
  Report Type: 
  Country: None (occurrence: None)
  Receive Date: 20060821
  Receipt Date: 20060814
  Transmission Date: 20061208
  Serious: Yes (Hospitalization)
  Sender: FDA-Public Use
  Company Number: US-ABBOTT-06P-163-0340603-00

PATIENT
  Sex: Female

DRUGS (2)
  1. HUMIRA [Suspect]
     Indication: RHEUMATOID ARTHRITIS
     Route: 058
     Dates: start: 20060811, end: 20060811
  2. AZATHIOPRINE [Concomitant]
     Indication: URINARY TRACT INFECTION
     Route: 048

REACTIONS (6)
  - BACK PAIN [None]
  - CHILLS [None]
  - HYPOTENSION [None]
  - INFECTION [None]
  - PYREXIA [None]
  - SEPSIS [None]
